FAERS Safety Report 9142295 (Version 1)
Quarter: 2013Q1

REPORT INFORMATION
  Report Type: Spontaneous
  Country: GB (occurrence: GB)
  Receive Date: 20130305
  Receipt Date: 20130305
  Transmission Date: 20140127
  Serious: Yes (Disabling, Other)
  Sender: FDA-Public Use
  Company Number: GB-BRISTOL-MYERS SQUIBB COMPANY-17438789

PATIENT
  Age: 69 Year
  Sex: Male

DRUGS (1)
  1. MITOMYCIN-C [Suspect]
     Indication: NEOPLASM MALIGNANT
     Dosage: FORM:INJECTION
     Route: 043
     Dates: start: 20121120

REACTIONS (1)
  - Mucosal necrosis [Not Recovered/Not Resolved]
